FAERS Safety Report 26095117 (Version 1)
Quarter: 2025Q4

REPORT INFORMATION
  Report Type: Spontaneous
  Country: EU (occurrence: EU)
  Receive Date: 20251127
  Receipt Date: 20251127
  Transmission Date: 20260118
  Serious: Yes (Other)
  Sender: BRISTOL-MYERS SQUIBB COMPANY
  Company Number: EU-002147023-NVSC2025ES172687

PATIENT
  Age: 43 Year
  Sex: Female

DRUGS (4)
  1. DASATINIB [Suspect]
     Active Substance: DASATINIB
     Indication: Chronic myeloid leukaemia
  2. ASCIMINIB [Suspect]
     Active Substance: ASCIMINIB
     Indication: Chronic myeloid leukaemia
  3. ICLUSIG [Suspect]
     Active Substance: PONATINIB HYDROCHLORIDE
     Indication: Chronic myeloid leukaemia
     Dates: start: 202211, end: 202303
  4. BOSUTINIB [Concomitant]
     Active Substance: BOSUTINIB
     Indication: Product used for unknown indication

REACTIONS (9)
  - Blast crisis in myelogenous leukaemia [Unknown]
  - Graft versus host disease in eye [Unknown]
  - Pericardial effusion [Unknown]
  - Bradycardia [Unknown]
  - Gastrointestinal disorder [Unknown]
  - Thyroiditis [Unknown]
  - Transaminases increased [Unknown]
  - Myalgia [Unknown]
  - Asthenia [Unknown]
